FAERS Safety Report 8482227 (Version 3)
Quarter: 2013Q1

REPORT INFORMATION
  Report Type: Report from Study
  Country: CA (occurrence: CA)
  Receive Date: 20120329
  Receipt Date: 20130108
  Transmission Date: 20140127
  Serious: Yes (Death, Hospitalization, Other)
  Sender: FDA-Public Use
  Company Number: CA-ROCHE-1049829

PATIENT
  Sex: Male
  Weight: 107 kg

DRUGS (14)
  1. TOCILIZUMAB [Suspect]
     Indication: RHEUMATOID ARTHRITIS
     Route: 042
     Dates: start: 20110516, end: 20120302
  2. RAMIPRIL [Concomitant]
     Indication: HYPERTENSION
     Route: 065
  3. APO-HYDRO [Concomitant]
  4. AMLODIPINE [Concomitant]
     Indication: HYPERTENSION
     Route: 065
  5. GLIMEPIRIDE [Concomitant]
     Indication: DIABETES MELLITUS
     Route: 065
  6. FINASTERIDE [Concomitant]
     Route: 065
  7. LIPITOR [Concomitant]
     Route: 065
  8. DAPSONE [Concomitant]
     Indication: DERMATITIS
     Route: 065
  9. PREDNISONE [Concomitant]
     Route: 065
  10. FOSAVANCE [Concomitant]
  11. METHOTREXATE [Concomitant]
     Route: 065
  12. VITAMIN D [Concomitant]
  13. ROBAXACET [Concomitant]
  14. FOLIC ACID [Concomitant]

REACTIONS (5)
  - Death [Fatal]
  - Pulmonary embolism [Unknown]
  - Deep vein thrombosis [Unknown]
  - Atrial fibrillation [Unknown]
  - Haemorrhage [Unknown]
